FAERS Safety Report 22205233 (Version 2)
Quarter: 2024Q4

REPORT INFORMATION
  Report Type: Report from Study
  Country: US (occurrence: US)
  Receive Date: 20230413
  Receipt Date: 20241101
  Transmission Date: 20250115
  Serious: No
  Sender: AMGEN
  Company Number: US-AMGEN-USASP2023062954

PATIENT
  Sex: Female

DRUGS (2)
  1. OTEZLA [Suspect]
     Active Substance: APREMILAST
     Indication: Off label use
     Dosage: 30 MILLIGRAM
     Route: 048
     Dates: start: 202212
  2. OTEZLA [Suspect]
     Active Substance: APREMILAST
     Indication: Dermatomyositis

REACTIONS (3)
  - Therapeutic response unexpected [Unknown]
  - Nausea [Not Recovered/Not Resolved]
  - Off label use [Unknown]

NARRATIVE: CASE EVENT DATE: 20221201
